FAERS Safety Report 21370919 (Version 1)
Quarter: 2022Q3

REPORT INFORMATION
  Report Type: Report from Study
  Country: IT (occurrence: IT)
  Receive Date: 20220923
  Receipt Date: 20220923
  Transmission Date: 20221027
  Serious: Yes (Hospitalization, Other)
  Sender: FDA-Public Use
  Company Number: IT-UCBSA-2022055403

PATIENT
  Sex: Female

DRUGS (3)
  1. LACOSAMIDE [Suspect]
     Active Substance: LACOSAMIDE
     Indication: Seizure
     Dosage: 200 MILLIGRAM
     Dates: start: 202103
  2. VIT B COMPLEXE [VITAMINS NOS] [Concomitant]
     Indication: Product used for unknown indication
  3. MERITENE [Concomitant]
     Indication: Product used for unknown indication

REACTIONS (2)
  - Cholecystitis [Unknown]
  - Cholecystectomy [Unknown]

NARRATIVE: CASE EVENT DATE: 20220601
